FAERS Safety Report 20438932 (Version 1)
Quarter: 2022Q1

REPORT INFORMATION
  Report Type: Spontaneous
  Country: US (occurrence: None)
  Receive Date: 20220204
  Receipt Date: 20220204
  Transmission Date: 20220424
  Serious: Yes (Life-Threatening)
  Sender: FDA-Public Use
  Company Number: None

PATIENT
  Age: 59 Year
  Sex: Male
  Weight: 100 kg

DRUGS (3)
  1. ENOXAPARIN [Suspect]
     Active Substance: ENOXAPARIN
     Indication: COVID-19
     Dosage: FREQUENCY : TWICE A DAY;?
     Route: 058
     Dates: start: 20220113, end: 20220119
  2. BENZTROPINE [Concomitant]
     Active Substance: BENZTROPINE
  3. PRAZOSIN [Concomitant]
     Active Substance: PRAZOSIN

REACTIONS (2)
  - Hypotension [None]
  - Retroperitoneal haemorrhage [None]

NARRATIVE: CASE EVENT DATE: 20220120
